FAERS Safety Report 18739420 (Version 1)
Quarter: 2021Q1

REPORT INFORMATION
  Report Type: Spontaneous
  Country: US (occurrence: US)
  Receive Date: 20210113
  Receipt Date: 20210113
  Transmission Date: 20210419
  Serious: Yes (Other)
  Sender: FDA-Public Use
  Company Number: None

PATIENT
  Age: 67 Year
  Sex: Female
  Weight: 81.9 kg

DRUGS (1)
  1. BAMLANIVIMAB. [Suspect]
     Active Substance: BAMLANIVIMAB
     Indication: COVID-19
     Dosage: ?          OTHER FREQUENCY:ONCE;?
     Route: 041
     Dates: start: 20201229, end: 20201229

REACTIONS (6)
  - Pancreatitis acute [None]
  - Nausea [None]
  - Vomiting [None]
  - Abdominal rigidity [None]
  - Lipase increased [None]
  - Fatigue [None]

NARRATIVE: CASE EVENT DATE: 20210106
